FAERS Safety Report 10548303 (Version 1)
Quarter: 2014Q4

REPORT INFORMATION
  Report Type: Spontaneous
  Country: US (occurrence: None)
  Receive Date: 20141027
  Receipt Date: 20141027
  Transmission Date: 20150529
  Serious: Yes (Other)
  Sender: FDA-Public Use
  Company Number: None

PATIENT
  Age: 53 Year
  Sex: Female
  Weight: 102.06 kg

DRUGS (1)
  1. BIO FREEZE [Suspect]
     Active Substance: MENTHOL
     Indication: WOUND TREATMENT
     Dosage: 2 TIMES HAND FULL ONCE OR TWICE APPLIED TO A SURFACE, USUALLY THE SKIN

REACTIONS (11)
  - Rash [None]
  - Eye swelling [None]
  - Application site pruritus [None]
  - Joint swelling [None]
  - Pruritus [None]
  - Dysgeusia [None]
  - Pharyngeal oedema [None]
  - Heart rate increased [None]
  - Application site pain [None]
  - Hypersensitivity [None]
  - Synovial cyst [None]

NARRATIVE: CASE EVENT DATE: 20021010
